FAERS Safety Report 8047400-9 (Version None)
Quarter: 2012Q1

REPORT INFORMATION
  Report Type: 
  Country: None (occurrence: None)
  Receive Date: 20120116
  Receipt Date: 20120106
  Transmission Date: 20120608
  Serious: Yes (Other)
  Sender: FDA-Public Use
  Company Number: US-PERRIGO-12US000136

PATIENT
  Sex: Male

DRUGS (1)
  1. NICOTINE POLACRILEX [Suspect]
     Indication: SMOKING CESSATION THERAPY
     Dosage: 4 MG, 10 PLUS TIMES A DAY
     Route: 002
     Dates: start: 20100101

REACTIONS (3)
  - COUGH [None]
  - LOSS OF CONSCIOUSNESS [None]
  - INCORRECT DRUG ADMINISTRATION DURATION [None]
